FAERS Safety Report 8175567-0 (Version None)
Quarter: 2012Q1

REPORT INFORMATION
  Report Type: 
  Country: None (occurrence: None)
  Receive Date: 20120301
  Receipt Date: 20120222
  Transmission Date: 20120608
  Serious: Yes (Hospitalization)
  Sender: FDA-Public Use
  Company Number: US-BIOGENIDEC-2012BI006907

PATIENT
  Sex: Female

DRUGS (1)
  1. AVONEX [Suspect]
     Indication: MULTIPLE SCLEROSIS
     Route: 030
     Dates: start: 20051014

REACTIONS (10)
  - PAIN [None]
  - DYSPNOEA [None]
  - PAIN IN EXTREMITY [None]
  - BLOOD PRESSURE ORTHOSTATIC DECREASED [None]
  - PYREXIA [None]
  - LOSS OF CONSCIOUSNESS [None]
  - HYPERTENSION [None]
  - INSOMNIA [None]
  - CHEST PAIN [None]
  - BLOOD PRESSURE FLUCTUATION [None]
